FAERS Safety Report 18990389 (Version 1)
Quarter: 2021Q1

REPORT INFORMATION
  Report Type: Spontaneous
  Country: US (occurrence: US)
  Receive Date: 20210310
  Receipt Date: 20210310
  Transmission Date: 20210420
  Serious: Yes (Life-Threatening, Hospitalization, Other)
  Sender: FDA-Public Use
  Company Number: US-SA-2021SA075889

PATIENT
  Age: 10 Year
  Sex: Male

DRUGS (2)
  1. HYDROCORTISONE. [Suspect]
     Active Substance: HYDROCORTISONE
     Indication: FAMILIAL HAEMOPHAGOCYTIC LYMPHOHISTIOCYTOSIS
     Dosage: UNK
  2. METHOTREXATE. [Suspect]
     Active Substance: METHOTREXATE
     Indication: FAMILIAL HAEMOPHAGOCYTIC LYMPHOHISTIOCYTOSIS
     Dosage: UNK UNK, QW
     Route: 037

REACTIONS (7)
  - Intestinal perforation [Recovering/Resolving]
  - Diarrhoea haemorrhagic [Recovering/Resolving]
  - Neutropenia [Recovering/Resolving]
  - Haemolytic uraemic syndrome [Recovering/Resolving]
  - Abdominal wall wound [Recovering/Resolving]
  - Escherichia infection [Recovering/Resolving]
  - Renal failure [Recovering/Resolving]
